FAERS Safety Report 6042229-5 (Version None)
Quarter: 2009Q1

REPORT INFORMATION
  Report Type: 
  Country: None (occurrence: None)
  Receive Date: 20090116
  Receipt Date: 20090107
  Transmission Date: 20090719
  Serious: Yes (Hospitalization)
  Sender: FDA-Public Use
  Company Number: JP-BAYER-200910060BYL

PATIENT
  Age: 88 Year
  Sex: Male

DRUGS (2)
  1. ASPIRIN [Suspect]
     Indication: CARDIOVASCULAR DISORDER
     Dosage: TOTAL DAILY DOSE: 100 MG  UNIT DOSE: 100 MG
     Route: 048
     Dates: end: 20080602
  2. FAMOTIDINE [Concomitant]
     Indication: DRUG USE FOR UNKNOWN INDICATION
     Route: 048

REACTIONS (6)
  - ANAEMIA [None]
  - CEREBRAL INFARCTION [None]
  - DEEP VEIN THROMBOSIS [None]
  - DUODENAL ULCER HAEMORRHAGE [None]
  - FAECES DISCOLOURED [None]
  - MYOCARDIAL INFARCTION [None]
